FAERS Safety Report 20942672 (Version 2)
Quarter: 2022Q2

REPORT INFORMATION
  Report Type: Spontaneous
  Country: AU (occurrence: AU)
  Receive Date: 20220610
  Receipt Date: 20220615
  Transmission Date: 20220721
  Serious: Yes (Death, Life-Threatening)
  Sender: FDA-Public Use
  Company Number: AU-SERVIER-S22005399

PATIENT

DRUGS (17)
  1. ONCASPAR [Suspect]
     Active Substance: PEGASPARGASE
     Indication: B-cell type acute leukaemia
     Dosage: 1762.5 IU, ONE DOSE
     Route: 042
     Dates: start: 20220508, end: 20220508
  2. METHYLPREDNISOLONE [Concomitant]
     Active Substance: METHYLPREDNISOLONE
     Indication: B-cell type acute leukaemia
     Dosage: 4.6 MG, TID
     Route: 042
     Dates: start: 20220506, end: 20220520
  3. VINCRISTINE [Concomitant]
     Active Substance: VINCRISTINE
     Indication: B-cell type acute leukaemia
     Dosage: 1.1 MG, ONE DOSE
     Route: 042
     Dates: start: 20220506, end: 20220506
  4. DAUNORUBICIN [Concomitant]
     Active Substance: DAUNORUBICIN
     Indication: B-cell type acute leukaemia
     Dosage: 17.6 MG, ONE DOSE
     Route: 042
     Dates: start: 20220507, end: 20220507
  5. CYTARABINE [Concomitant]
     Active Substance: CYTARABINE
     Indication: B-cell type acute leukaemia
     Dosage: 36 MG, ONE DOSE
     Route: 037
     Dates: start: 20220505, end: 20220505
  6. HYDROCORTISONE [Concomitant]
     Active Substance: HYDROCORTISONE
     Indication: B-cell type acute leukaemia
     Dosage: 24 MG, ONE DOSE
     Route: 037
     Dates: start: 20220505, end: 20220505
  7. HYDROCORTISONE [Concomitant]
     Active Substance: HYDROCORTISONE
     Indication: Premedication
     Dosage: 70 MG, ONE DOSE
     Route: 042
     Dates: start: 20220508, end: 20220508
  8. METHOTREXATE [Concomitant]
     Active Substance: METHOTREXATE
     Indication: B-cell type acute leukaemia
     Dosage: 12 MG, ONE DOSE
     Route: 037
     Dates: start: 20220505, end: 20220505
  9. CALCIUM FOLINATE ACTAVIS [Concomitant]
     Indication: Chemotherapy side effect prophylaxis
     Dosage: UNK
     Route: 037
     Dates: start: 20220507
  10. SULFAMETHOXAZOLE\TRIMETHOPRIM [Concomitant]
     Active Substance: SULFAMETHOXAZOLE\TRIMETHOPRIM
     Indication: Antifungal prophylaxis
     Dosage: 80 MG/400 MG, BID
     Route: 048
     Dates: start: 20220507, end: 20220526
  11. LEVOFLOXACIN [Concomitant]
     Active Substance: LEVOFLOXACIN
     Indication: Infection prophylaxis
     Dosage: 125 MG, QD
     Route: 048
     Dates: start: 20220506, end: 20220521
  12. ONDANSETRON [Concomitant]
     Active Substance: ONDANSETRON
     Indication: Prophylaxis of nausea and vomiting
     Dosage: 9.6 MG
     Route: 048
     Dates: start: 20220506, end: 20220519
  13. PANTOPRAZOLE [Concomitant]
     Active Substance: PANTOPRAZOLE
     Indication: Prophylaxis against gastrointestinal ulcer
     Dosage: 20 MG, QD
     Route: 042
     Dates: start: 20220506, end: 20220525
  14. AMPHOTERICIN B [Concomitant]
     Active Substance: AMPHOTERICIN B
     Indication: Antifungal prophylaxis
     Dosage: 50 MG, 3X A WEEK
     Route: 042
     Dates: start: 20220509, end: 20220523
  15. PIPERACILLIN SODIUM\TAZOBACTAM SODIUM [Concomitant]
     Active Substance: PIPERACILLIN SODIUM\TAZOBACTAM SODIUM
     Indication: Antibiotic therapy
     Dosage: 6560 MG FOR 48 HOURS
     Route: 042
     Dates: start: 20220508, end: 20220510
  16. PIPERACILLIN SODIUM\TAZOBACTAM SODIUM [Concomitant]
     Active Substance: PIPERACILLIN SODIUM\TAZOBACTAM SODIUM
     Dosage: 6560 MG FOR 96 HOURS
     Route: 042
     Dates: start: 20220515, end: 20220519
  17. AMIKACIN [Concomitant]
     Active Substance: AMIKACIN
     Indication: Antibiotic therapy
     Dosage: 362.5 MG FOR 24 HOURS
     Route: 042
     Dates: start: 20220515

REACTIONS (2)
  - Drug-induced liver injury [Fatal]
  - Herpes simplex [Unknown]

NARRATIVE: CASE EVENT DATE: 20220516
